FAERS Safety Report 6476787-3 (Version None)
Quarter: 2009Q4

REPORT INFORMATION
  Report Type: 
  Country: None (occurrence: None)
  Receive Date: 20091207
  Receipt Date: 20091130
  Transmission Date: 20100525
  Serious: Yes (Life-Threatening, Hospitalization, Other)
  Sender: FDA-Public Use
  Company Number: PHHY2009ES52489

PATIENT
  Age: 59 Year
  Sex: Male

DRUGS (6)
  1. VADITON PROLIB [Suspect]
     Dosage: 80 MG, QD
     Route: 048
     Dates: start: 20070921, end: 20090319
  2. FENOFIBRATE [Interacting]
     Dosage: 160 MG, QD
     Dates: start: 20070921, end: 20090319
  3. ENALAPRIL [Concomitant]
     Dosage: UNK
     Route: 048
     Dates: start: 20070921, end: 20090319
  4. METFORMIN HCL [Concomitant]
     Dosage: 850 MG, BID
     Route: 048
     Dates: start: 20070921, end: 20090319
  5. DISGREN [Concomitant]
     Dosage: 300 MG, BID
     Route: 048
     Dates: start: 20070921, end: 20090319
  6. EUGLUCON [Concomitant]
     Dosage: 5 MG, TID
     Route: 048
     Dates: start: 20070921, end: 20090319

REACTIONS (3)
  - DRUG INTERACTION [None]
  - RENAL FAILURE ACUTE [None]
  - RHABDOMYOLYSIS [None]
